FAERS Safety Report 6004026-6 (Version None)
Quarter: 2008Q4

REPORT INFORMATION
  Report Type: 
  Country: None (occurrence: None)
  Receive Date: 20081216
  Receipt Date: 20081211
  Transmission Date: 20090506
  Serious: Yes (Other)
  Sender: FDA-Public Use
  Company Number: A0760028A

PATIENT
  Sex: Male
  Weight: 109.1 kg

DRUGS (6)
  1. ARIXTRA [Suspect]
     Indication: KNEE ARTHROPLASTY
     Route: 065
  2. COUMADIN [Suspect]
     Indication: PULMONARY EMBOLISM
  3. CELEBREX [Concomitant]
  4. AVALIDE [Concomitant]
  5. PRAVASTATIN [Concomitant]
     Dosage: 40MGD PER DAY
     Route: 048
  6. ZETIA [Concomitant]
     Dosage: 10MGD PER DAY
     Route: 048

REACTIONS (3)
  - ECCHYMOSIS [None]
  - OEDEMA PERIPHERAL [None]
  - PULMONARY EMBOLISM [None]
